FAERS Safety Report 8064636-1 (Version None)
Quarter: 2012Q1

REPORT INFORMATION
  Report Type: 
  Country: None (occurrence: None)
  Receive Date: 20120123
  Receipt Date: 20120117
  Transmission Date: 20120608
  Serious: Yes (Hospitalization, Other)
  Sender: FDA-Public Use
  Company Number: DE-ASTRAZENECA-2012SE03143

PATIENT
  Age: 74 Year
  Sex: Female
  Weight: 80 kg

DRUGS (9)
  1. LEVOTHYROXINE SODIUM [Concomitant]
     Indication: THYROID HAEMORRHAGE
     Dates: start: 20070101
  2. AMLODIPINE [Suspect]
     Indication: HYPERTENSION
     Route: 048
     Dates: start: 20081117
  3. INUVAIR [Suspect]
     Indication: CHRONIC OBSTRUCTIVE PULMONARY DISEASE
     Dosage: 100/6 UG DAILY
     Route: 065
     Dates: start: 20070101
  4. ALLOPURINOL [Concomitant]
     Indication: HYPERURICAEMIA
     Dates: start: 20070101
  5. RASILEZ HCT [Suspect]
     Indication: HYPERTENSION
     Dosage: 300/12.5 MG DAILY
     Route: 048
     Dates: start: 20081104
  6. ACE INHIBITOR [Concomitant]
  7. ESOMEPRAZOLE [Suspect]
     Route: 048
     Dates: start: 20101109
  8. ASPIRIN [Concomitant]
     Indication: ARTERIOSCLEROSIS CORONARY ARTERY
     Dates: start: 20070101
  9. SPIRONOLACTONE [Suspect]
     Indication: HYPERTENSION
     Route: 048
     Dates: start: 20081209

REACTIONS (5)
  - DIABETES MELLITUS [None]
  - FLATULENCE [None]
  - DYSPNOEA [None]
  - NAUSEA [None]
  - UTERINE CANCER [None]
